FAERS Safety Report 18883074 (Version 3)
Quarter: 2021Q1

REPORT INFORMATION
  Report Type: Report from Study
  Country: IL (occurrence: IL)
  Receive Date: 20210211
  Receipt Date: 20210316
  Transmission Date: 20210420
  Serious: Yes (Hospitalization, Other)
  Sender: FDA-Public Use
  Company Number: IL-BAYER-2021-054966

PATIENT
  Sex: Male

DRUGS (9)
  1. CADEX [IODINE] [Concomitant]
  2. XGEVA [Concomitant]
     Active Substance: DENOSUMAB
  3. XOFIGO [Suspect]
     Active Substance: RADIUM RA-223 DICHLORIDE
     Indication: HORMONE-REFRACTORY PROSTATE CANCER
     Dosage: UNK
     Dates: start: 20210111, end: 20210111
  4. SIMOVIL [Concomitant]
     Active Substance: SIMVASTATIN
  5. ASPIRIN [ACETYLSALICYLIC ACID] [Concomitant]
     Active Substance: ASPIRIN
  6. TRITACE [Concomitant]
     Active Substance: RAMIPRIL
  7. AMLODIPINE [Concomitant]
     Active Substance: AMLODIPINE BESYLATE
  8. SUPERFACT [Concomitant]
     Active Substance: BUSERELIN ACETATE
  9. CALCIUMVIT [Concomitant]

REACTIONS (7)
  - Peripheral vascular disorder [None]
  - Pain in extremity [None]
  - Anaemia [Recovering/Resolving]
  - Blood creatinine increased [Recovering/Resolving]
  - Dehydration [None]
  - Renal disorder [Not Recovered/Not Resolved]
  - Deep vein thrombosis [None]
